FAERS Safety Report 20290638 (Version 3)
Quarter: 2024Q1

REPORT INFORMATION
  Report Type: Spontaneous
  Country: GB (occurrence: GB)
  Receive Date: 20220104
  Receipt Date: 20240109
  Transmission Date: 20240410
  Serious: Yes (Life-Threatening, Hospitalization, Disabling, Other)
  Sender: FDA-Public Use
  Company Number: None

PATIENT
  Age: 16 Year
  Sex: Female
  Weight: 60 kg

DRUGS (6)
  1. MONTELUKAST [Suspect]
     Active Substance: MONTELUKAST SODIUM
     Indication: Multiple allergies
     Dosage: 10 MG
     Route: 048
     Dates: start: 20210515, end: 20211208
  2. ACARBOSE [Concomitant]
     Active Substance: ACARBOSE
     Indication: Ill-defined disorder
  3. AMITRIPTYLINE [Concomitant]
     Active Substance: AMITRIPTYLINE
     Indication: Ill-defined disorder
  4. FEXOFENADINE HYDROCHLORIDE [Concomitant]
     Active Substance: FEXOFENADINE HYDROCHLORIDE
     Indication: Ill-defined disorder
  5. MAGNESIUM [Concomitant]
     Active Substance: MAGNESIUM
     Indication: Ill-defined disorder
  6. ACETAMINOPHEN [Concomitant]
     Active Substance: ACETAMINOPHEN
     Indication: Ill-defined disorder

REACTIONS (25)
  - Depression suicidal [Recovered/Resolved]
  - Intentional self-injury [Recovered/Resolved]
  - Thinking abnormal [Recovered/Resolved]
  - Suicidal ideation [Recovered/Resolved]
  - Aggression [Recovered/Resolved]
  - Irritability [Recovered/Resolved]
  - Withdrawal syndrome [Recovering/Resolving]
  - Self-injurious ideation [Recovered/Resolved]
  - Emotional disorder [Recovered/Resolved]
  - Personality change [Recovered/Resolved]
  - Dyskinesia [Recovered/Resolved]
  - Screaming [Recovered/Resolved]
  - Abnormal behaviour [Recovered/Resolved]
  - Autophobia [Recovered/Resolved]
  - Suicide attempt [Recovered/Resolved]
  - Feeling of despair [Recovered/Resolved]
  - Dizziness [Not Recovered/Not Resolved]
  - Aphasia [Not Recovered/Not Resolved]
  - Brain fog [Not Recovered/Not Resolved]
  - Fatigue [Not Recovered/Not Resolved]
  - Disturbance in attention [Not Recovered/Not Resolved]
  - Memory impairment [Not Recovered/Not Resolved]
  - Anxiety [Not Recovered/Not Resolved]
  - Social problem [Not Recovered/Not Resolved]
  - Brain injury [Not Recovered/Not Resolved]

NARRATIVE: CASE EVENT DATE: 20210515
